FAERS Safety Report 7495378-9 (Version None)
Quarter: 2011Q2

REPORT INFORMATION
  Report Type: 
  Country: None (occurrence: None)
  Receive Date: 20110523
  Receipt Date: 20110513
  Transmission Date: 20111010
  Serious: Yes (Hospitalization, Other)
  Sender: FDA-Public Use
  Company Number: GB-ELI_LILLY_AND_COMPANY-GB201105003663

PATIENT
  Age: 63 Year
  Sex: Male

DRUGS (14)
  1. DIPYRIDAMOLE [Concomitant]
  2. BYETTA [Suspect]
     Dosage: 10 MG, BID
     Route: 048
     Dates: start: 20110428, end: 20110502
  3. METFORMIN [Concomitant]
  4. RAMIPRIL [Concomitant]
  5. AMLODIPINE [Concomitant]
  6. CITALOPRAM HYDROBROMIDE [Concomitant]
  7. IBUPROFEN [Concomitant]
  8. SIMVASTATIN [Concomitant]
  9. ALBUTEROL [Concomitant]
  10. ASPIRIN [Concomitant]
  11. OMEPRAZOLE [Concomitant]
  12. BYETTA [Suspect]
     Indication: DIABETES MELLITUS
     Dosage: 5 MG, BID
     Route: 048
     Dates: start: 20110323, end: 20110427
  13. SERETIDE [Concomitant]
  14. LOSARTAN POTASSIUM [Concomitant]

REACTIONS (2)
  - RENAL FAILURE ACUTE [None]
  - LOWER RESPIRATORY TRACT INFECTION [None]
